FAERS Safety Report 5060695-9 (Version None)
Quarter: 2006Q3

REPORT INFORMATION
  Report Type: 
  Country: None (occurrence: None)
  Receive Date: 20060720
  Receipt Date: 20060720
  Transmission Date: 20061208
  Serious: Yes (Death, Hospitalization)
  Sender: FDA-Public Use
  Company Number: None

PATIENT
  Sex: Male
  Weight: 101 kg

DRUGS (2)
  1. DEXAMETHASONE TAB [Suspect]
     Dosage: 280 MG
     Dates: start: 20060619
  2. L-ASPARAGINASE [Suspect]
     Dates: start: 20060616

REACTIONS (7)
  - ABDOMINAL PAIN [None]
  - COLITIS ISCHAEMIC [None]
  - DIARRHOEA [None]
  - DISSEMINATED INTRAVASCULAR COAGULATION [None]
  - HYPOTENSION [None]
  - PANCREATITIS NECROTISING [None]
  - RENAL FAILURE ACUTE [None]
